FAERS Safety Report 9654678 (Version 1)
Quarter: 2013Q4

REPORT INFORMATION
  Report Type: Spontaneous
  Country: NL (occurrence: None)
  Receive Date: 20131028
  Receipt Date: 20131028
  Transmission Date: 20140711
  Serious: Yes (Death, Hospitalization)
  Sender: FDA-Public Use
  Company Number: 2013AP009225

PATIENT
  Age: 61 Year
  Sex: Female

DRUGS (1)
  1. CARBAZEPINE [Suspect]

REACTIONS (3)
  - Overdose [None]
  - Toxicity to various agents [None]
  - Shock [None]
